FAERS Safety Report 4472009-3 (Version None)
Quarter: 2004Q4

REPORT INFORMATION
  Report Type: 
  Country: None (occurrence: None)
  Receive Date: 20041006
  Receipt Date: 20040923
  Transmission Date: 20050328
  Serious: Yes (Life-Threatening, Hospitalization, Other)
  Sender: FDA-Public Use
  Company Number: A-CH2004-07106

PATIENT
  Age: 4 Year
  Sex: Female
  Weight: 13 kg

DRUGS (2)
  1. TRACLEER [Suspect]
     Indication: PULMONARY HYPERTENSION
     Dosage: 15.625 MG , BID, ORAL  : 31.25 MG, BID, ORAL
     Route: 048
     Dates: start: 20020801, end: 20020901
  2. TRACLEER [Suspect]
     Indication: PULMONARY HYPERTENSION
     Dosage: 15.625 MG , BID, ORAL  : 31.25 MG, BID, ORAL
     Route: 048
     Dates: start: 20020901

REACTIONS (8)
  - CARDIAC OPERATION [None]
  - CATHETER RELATED INFECTION [None]
  - DRUG INEFFECTIVE [None]
  - DRUG TOLERANCE DECREASED [None]
  - EPISTAXIS [None]
  - IDIOPATHIC THROMBOCYTOPENIC PURPURA [None]
  - PULMONARY HYPERTENSION [None]
  - SYNCOPE [None]
